FAERS Safety Report 20500564 (Version 6)
Quarter: 2022Q2

REPORT INFORMATION
  Report Type: Spontaneous
  Country: US (occurrence: US)
  Receive Date: 20220222
  Receipt Date: 20220510
  Transmission Date: 20220720
  Serious: No
  Sender: FDA-Public Use
  Company Number: US-SA-SAC20220216000628

PATIENT
  Age: 41 Year
  Sex: Female
  Weight: 63.039 kg

DRUGS (3)
  1. DUPIXENT [Suspect]
     Active Substance: DUPILUMAB
     Indication: Asthma
     Dosage: 400 MG, 1X
     Route: 058
  2. DUPIXENT [Suspect]
     Active Substance: DUPILUMAB
     Dosage: 200 MG, QOW
     Route: 058
     Dates: start: 20220131
  3. DUPIXENT [Suspect]
     Active Substance: DUPILUMAB
     Dosage: 300 MG, QOW
     Route: 058
     Dates: start: 20220214

REACTIONS (5)
  - Injection site pain [Unknown]
  - Wrong technique in product usage process [Unknown]
  - Product use issue [Unknown]
  - Therapeutic response decreased [Unknown]
  - Therapeutic response shortened [Unknown]

NARRATIVE: CASE EVENT DATE: 20220214
